FAERS Safety Report 16640471 (Version 3)
Quarter: 2019Q3

REPORT INFORMATION
  Report Type: Report from Study
  Country: None (occurrence: US)
  Receive Date: 20190729
  Receipt Date: 20190927
  Transmission Date: 20191004
  Serious: Yes (Hospitalization, Other)
  Sender: FDA-Public Use
  Company Number: US-ABBVIE-19K-163-2867720-00

PATIENT
  Sex: Male

DRUGS (1)
  1. HUMIRA [Suspect]
     Active Substance: ADALIMUMAB
     Indication: CROHN^S DISEASE
     Dosage: CITRATE FREE
     Route: 058

REACTIONS (9)
  - Food allergy [Not Recovered/Not Resolved]
  - Stress [Unknown]
  - Hospitalisation [Unknown]
  - Seizure [Unknown]
  - Cyst [Recovered/Resolved]
  - Memory impairment [Not Recovered/Not Resolved]
  - Nausea [Unknown]
  - Retching [Unknown]
  - Abdominal pain [Unknown]
